FAERS Safety Report 20539386 (Version 1)
Quarter: 2022Q1

REPORT INFORMATION
  Report Type: Report from Study
  Country: US (occurrence: US)
  Receive Date: 20220302
  Receipt Date: 20220302
  Transmission Date: 20220423
  Serious: Yes (Other)
  Sender: FDA-Public Use
  Company Number: US-JNJFOC-20191017289

PATIENT
  Sex: Female

DRUGS (1)
  1. SPORANOX [Suspect]
     Active Substance: ITRACONAZOLE
     Indication: Vulvovaginal pain
     Dosage: 400 MG OF ITRACONAZOLE (DISPERSED AS 200 MG TWICE PER DAY)
     Route: 065

REACTIONS (5)
  - Seizure [Unknown]
  - Liver function test abnormal [Recovered/Resolved]
  - Frequent bowel movements [Unknown]
  - Off label use [Unknown]
  - Product use in unapproved indication [Unknown]
